FAERS Safety Report 14378739 (Version 4)
Quarter: 2018Q1

REPORT INFORMATION
  Report Type: Report from Study
  Country: US (occurrence: US)
  Receive Date: 20180112
  Receipt Date: 20180308
  Transmission Date: 20180509
  Serious: No
  Sender: FDA-Public Use
  Company Number: PHEH2018US001027

PATIENT
  Age: 49 Year
  Sex: Female

DRUGS (1)
  1. SIGNIFOR LAR [Suspect]
     Active Substance: PASIREOTIDE
     Indication: PRODUCT USED FOR UNKNOWN INDICATION
     Dosage: 60 MG, UNK
     Route: 065

REACTIONS (8)
  - Asthenia [Unknown]
  - Uterine disorder [Unknown]
  - Parosmia [Unknown]
  - Arthralgia [Unknown]
  - Nasopharyngitis [Unknown]
  - Joint stiffness [Unknown]
  - Blood oestrogen increased [Unknown]
  - Bone density increased [Unknown]

NARRATIVE: CASE EVENT DATE: 201712
